FAERS Safety Report 6653919-5 (Version None)
Quarter: 2010Q1

REPORT INFORMATION
  Report Type: 
  Country: None (occurrence: None)
  Receive Date: 20100326
  Receipt Date: 20100317
  Transmission Date: 20100710
  Serious: Yes (Hospitalization)
  Sender: FDA-Public Use
  Company Number: US-PURDUE-USA-2010-0042743

PATIENT

DRUGS (1)
  1. OXYCONTIN [Suspect]
     Indication: THYROID CANCER
     Dosage: 320 MG, TID
     Route: 048

REACTIONS (2)
  - FALL [None]
  - PNEUMONIA [None]
